FAERS Safety Report 20045483 (Version 2)
Quarter: 2021Q4

REPORT INFORMATION
  Report Type: Report from Study
  Country: US (occurrence: US)
  Receive Date: 20211108
  Receipt Date: 20211115
  Transmission Date: 20220303
  Serious: Yes (Other)
  Sender: FDA-Public Use
  Company Number: US-OTSUKA-2021_038164

PATIENT
  Age: 41 Year
  Sex: Female
  Weight: 68.04 kg

DRUGS (5)
  1. ARIPIPRAZOLE [Suspect]
     Active Substance: ARIPIPRAZOLE
     Indication: Bipolar disorder
     Dosage: UNK
     Route: 065
     Dates: start: 202109
  2. ARIPIPRAZOLE [Suspect]
     Active Substance: ARIPIPRAZOLE
     Indication: Schizophrenia
  3. GABAPENTIN [Concomitant]
     Active Substance: GABAPENTIN
     Indication: Product used for unknown indication
     Dosage: 300 MG, TID
     Route: 065
  4. DOXEPIN [Concomitant]
     Active Substance: DOXEPIN
     Indication: Product used for unknown indication
     Dosage: 100 MG (AT BEDTIME)
     Route: 048
  5. BENZTROPINE MESYLATE [Concomitant]
     Active Substance: BENZTROPINE MESYLATE
     Indication: Injection
     Dosage: 1 MG (TABLET), BID
     Route: 065

REACTIONS (11)
  - Hallucination, visual [Unknown]
  - Hallucination, auditory [Unknown]
  - Intentional self-injury [Unknown]
  - Adverse event [Unknown]
  - Screaming [Unknown]
  - Mania [Unknown]
  - Soliloquy [Unknown]
  - Mood altered [Unknown]
  - Weight increased [Unknown]
  - Product dose omission issue [Unknown]
  - Inability to afford medication [Unknown]

NARRATIVE: CASE EVENT DATE: 20211103
